FAERS Safety Report 9789811 (Version 1)
Quarter: 2013Q4

REPORT INFORMATION
  Report Type: Spontaneous
  Country: FR (occurrence: None)
  Receive Date: 20131227
  Receipt Date: 20131227
  Transmission Date: 20140711
  Serious: Yes (Hospitalization)
  Sender: FDA-Public Use
  Company Number: 1954848

PATIENT
  Age: 64 Year
  Sex: Female

DRUGS (5)
  1. CARBOPLATIN [Suspect]
     Indication: OVARIAN CANCER
     Route: 042
     Dates: start: 20120201, end: 20120201
  2. GEMCITABINE [Suspect]
     Indication: OVARIAN CANCER
     Route: 042
     Dates: start: 20120201, end: 20120201
  3. ONDANSETRON [Concomitant]
  4. METHYLPREDNISOLONE [Concomitant]
  5. DEXCHLORPHENIRAMINE MALEATE [Concomitant]

REACTIONS (3)
  - Chest pain [None]
  - Hypotension [None]
  - Abdominal pain [None]
